FAERS Safety Report 10710771 (Version 4)
Quarter: 2015Q2

REPORT INFORMATION
  Report Type: Spontaneous
  Country: US (occurrence: US)
  Receive Date: 20150114
  Receipt Date: 20150408
  Transmission Date: 20150821
  Serious: No
  Sender: FDA-Public Use
  Company Number: US-EISAI MEDICAL RESEARCH-EC-2015-002825

PATIENT
  Sex: Male
  Weight: 68 kg

DRUGS (17)
  1. DONEPEZIL [Suspect]
     Active Substance: DONEPEZIL
     Indication: DEMENTIA
     Route: 048
     Dates: start: 20140617, end: 20140715
  2. DONEPEZIL [Suspect]
     Active Substance: DONEPEZIL
     Route: 048
     Dates: start: 201408, end: 20150112
  3. CALCIUM [Concomitant]
     Active Substance: CALCIUM
  4. NEUPRO [Concomitant]
     Active Substance: ROTIGOTINE
     Route: 062
     Dates: start: 20141125, end: 2014
  5. NEUPRO [Concomitant]
     Active Substance: ROTIGOTINE
     Route: 062
     Dates: start: 2014, end: 20150113
  6. MIRAPEX ER [Suspect]
     Active Substance: PRAMIPEXOLE DIHYDROCHLORIDE
     Indication: PARKINSON^S DISEASE
     Route: 048
     Dates: start: 201401, end: 2014
  7. DONEPEZIL [Suspect]
     Active Substance: DONEPEZIL
     Route: 048
     Dates: start: 20140805, end: 201408
  8. NORTRIPTYLINE [Concomitant]
     Active Substance: NORTRIPTYLINE
  9. MIRAPEX ER [Suspect]
     Active Substance: PRAMIPEXOLE DIHYDROCHLORIDE
     Route: 048
     Dates: start: 2014, end: 20141125
  10. VITAMIN D3 [Concomitant]
     Active Substance: CHOLECALCIFEROL
  11. MIRAPEX ER [Suspect]
     Active Substance: PRAMIPEXOLE DIHYDROCHLORIDE
     Dates: start: 20150113
  12. CITALOPRAM HYDROBROMIDE. [Concomitant]
     Active Substance: CITALOPRAM HYDROBROMIDE
     Indication: DEPRESSION
     Route: 048
  13. DONEPEZIL [Suspect]
     Active Substance: DONEPEZIL
     Route: 048
     Dates: start: 20150113
  14. TAMSULOSIN HCL [Concomitant]
     Active Substance: TAMSULOSIN
     Indication: PARKINSON^S DISEASE
  15. DONEPEZIL [Suspect]
     Active Substance: DONEPEZIL
     Indication: AMNESIA
     Route: 048
     Dates: start: 20140716, end: 20140804
  16. CARBIDOPA-LEVODOPA-ENTACAPONE [Concomitant]
     Indication: DEMENTIA
     Dosage: MULTIPLE DOSES
     Route: 048
     Dates: start: 2014
  17. FOLIC ACID. [Concomitant]
     Active Substance: FOLIC ACID

REACTIONS (1)
  - Mania [Recovering/Resolving]

NARRATIVE: CASE EVENT DATE: 2014
